FAERS Safety Report 4425975-6 (Version None)
Quarter: 2004Q3

REPORT INFORMATION
  Report Type: 
  Country: None (occurrence: None)
  Receive Date: 20040719
  Receipt Date: 20040607
  Transmission Date: 20050211
  Serious: No
  Sender: FDA-Public Use
  Company Number: A03200401813

PATIENT
  Age: 63 Year
  Sex: Male

DRUGS (4)
  1. UROXATRAL [Suspect]
     Indication: BLADDER DISORDER
     Dosage: 10 MG OD - ORAL
     Route: 048
     Dates: start: 20040603, end: 20040604
  2. UROXATRAL [Suspect]
     Indication: NOCTURIA
     Dosage: 10 MG OD - ORAL
     Route: 048
     Dates: start: 20040603, end: 20040604
  3. ATORVASTATIN [Concomitant]
  4. ACETYLSALICYLIC ACID [Concomitant]

REACTIONS (6)
  - DIZZINESS [None]
  - HEADACHE [None]
  - NAUSEA [None]
  - SPEECH DISORDER [None]
  - TOOTHACHE [None]
  - VOMITING [None]
